FAERS Safety Report 8589964-2 (Version None)
Quarter: 2012Q3

REPORT INFORMATION
  Report Type: 
  Country: None (occurrence: None)
  Receive Date: 20120813
  Receipt Date: 20120802
  Transmission Date: 20120928
  Serious: Yes (Hospitalization, Other)
  Sender: FDA-Public Use
  Company Number: IT-B.I. PHARMACEUTICALS,INC./RIDGEFIELD-2012-EU-03934GD

PATIENT
  Sex: Male

DRUGS (4)
  1. BUDESONIDE [Suspect]
     Indication: ASTHMA
     Dosage: 640 MCG
     Route: 055
  2. TIOTROPIUM BROMIDE [Suspect]
     Indication: ASTHMA
     Dosage: 18 MCG
  3. PREDNISONE TAB [Suspect]
     Indication: ASTHMA
     Dosage: 25 MG
     Route: 048
  4. FORMOTEROL FUMARATE [Suspect]
     Indication: ASTHMA
     Dosage: 18 MCG

REACTIONS (4)
  - ASTHMA [None]
  - DRUG INEFFECTIVE [None]
  - TACHYCARDIA [None]
  - ORAL CANDIDIASIS [None]
